FAERS Safety Report 25809185 (Version 1)
Quarter: 2025Q3

REPORT INFORMATION
  Report Type: Spontaneous
  Country: VN (occurrence: VN)
  Receive Date: 20250916
  Receipt Date: 20250916
  Transmission Date: 20251020
  Serious: Yes (Life-Threatening)
  Sender: EISAI
  Company Number: VN-Eisai-EC-2025-196683

PATIENT
  Age: 51 Year
  Sex: Female

DRUGS (1)
  1. HALAVEN [Suspect]
     Active Substance: ERIBULIN MESYLATE
     Indication: Breast cancer
     Route: 042
     Dates: start: 202306, end: 202408

REACTIONS (1)
  - Malignant neoplasm progression [Unknown]
